FAERS Safety Report 4534552-8 (Version None)
Quarter: 2004Q4

REPORT INFORMATION
  Report Type: 
  Country: None (occurrence: None)
  Receive Date: 20041214
  Receipt Date: 20041021
  Transmission Date: 20050328
  Serious: No
  Sender: FDA-Public Use
  Company Number: 2004240762US

PATIENT
  Age: 66 Year
  Sex: Female
  Weight: 68 kg

DRUGS (1)
  1. BEXTRA [Suspect]
     Dosage: 20 MG, QD, ORAL
     Route: 048
     Dates: start: 20040101

REACTIONS (13)
  - BLOOD CREATINE INCREASED [None]
  - BLOOD UREA INCREASED [None]
  - CARDIAC FLUTTER [None]
  - COAGULOPATHY [None]
  - DIZZINESS [None]
  - DYSPNOEA [None]
  - FLUID RETENTION [None]
  - HYPERCHOLESTEROLAEMIA [None]
  - NERVE COMPRESSION [None]
  - PAIN IN EXTREMITY [None]
  - RENAL IMPAIRMENT [None]
  - SPINAL DISORDER [None]
  - SYNCOPE [None]
